FAERS Safety Report 18298974 (Version 2)
Quarter: 2021Q1

REPORT INFORMATION
  Report Type: Spontaneous
  Country: CN (occurrence: CN)
  Receive Date: 20200923
  Receipt Date: 20210304
  Transmission Date: 20210419
  Serious: Yes (Hospitalization, Other)
  Sender: FDA-Public Use
  Company Number: CN-ACCORD-202153

PATIENT
  Age: 51 Year
  Sex: Male

DRUGS (1)
  1. ALLOPURINOL. [Suspect]
     Active Substance: ALLOPURINOL
     Indication: GOUT
     Dosage: STRENGTH : 100 MG
     Route: 048

REACTIONS (3)
  - Meige^s syndrome [Recovered/Resolved]
  - Conjunctivitis [Recovered/Resolved]
  - Refraction disorder [Recovered/Resolved]
